FAERS Safety Report 10275230 (Version 2)
Quarter: 2015Q2

REPORT INFORMATION
  Report Type: Report from Study
  Country: JP (occurrence: JP)
  Receive Date: 20140703
  Receipt Date: 20150401
  Transmission Date: 20150821
  Serious: Yes (Hospitalization)
  Sender: FDA-Public Use
  Company Number: JP-009507513-1407JPN000098

PATIENT
  Age: 1 Year
  Sex: Female
  Weight: 9 kg

DRUGS (4)
  1. DIAZOXIDE [Suspect]
     Active Substance: DIAZOXIDE
     Dosage: 90 MG, QD (25 MG IN THE MORNING AND NOON, 40 MG IN THE EVENING)
     Route: 048
     Dates: start: 20140618
  2. DIAZOXIDE [Suspect]
     Active Substance: DIAZOXIDE
     Indication: HYPOGLYCAEMIA
     Dosage: 15 MG, TID (15 MG IN THE MORNING, NOON AND EVENING)
     Route: 048
     Dates: start: 20130130, end: 20130131
  3. DIAZOXIDE [Suspect]
     Active Substance: DIAZOXIDE
     Indication: HYPERINSULINAEMIA
     Dosage: 70 MG, QD (30 MG IN THE MORNING, 20 MG AT NOON AND EVENING)
     Route: 048
     Dates: start: 20130201, end: 20130217
  4. DIAZOXIDE [Suspect]
     Active Substance: DIAZOXIDE
     Dosage: 80 MG, QD (30 MG IN THE MORNING AND EVENING, 20 MG AT NOON)
     Dates: start: 20130218, end: 20140617

REACTIONS (2)
  - Upper respiratory tract inflammation [Recovered/Resolved]
  - Gastroenteritis [Recovered/Resolved]

NARRATIVE: CASE EVENT DATE: 20131225
